FAERS Safety Report 19741615 (Version 10)
Quarter: 2022Q4

REPORT INFORMATION
  Report Type: Report from Study
  Country: US (occurrence: US)
  Receive Date: 20210824
  Receipt Date: 20221206
  Transmission Date: 20230112
  Serious: Yes (Other)
  Sender: FDA-Public Use
  Company Number: US-ABBVIE-21K-163-4040150-00

PATIENT
  Sex: Female

DRUGS (24)
  1. RINVOQ [Suspect]
     Active Substance: UPADACITINIB
     Indication: Rheumatoid arthritis
     Route: 048
     Dates: start: 2019
  2. RINVOQ [Suspect]
     Active Substance: UPADACITINIB
     Indication: Rheumatoid arthritis
     Route: 048
  3. RINVOQ [Suspect]
     Active Substance: UPADACITINIB
     Indication: Rheumatoid arthritis
     Dosage: 15 MILLIGRAM
     Route: 048
  4. HYDROXYCHLOROQUINE [Concomitant]
     Active Substance: HYDROXYCHLOROQUINE
     Indication: Arthritis
  5. TRAMADOL [Concomitant]
     Active Substance: TRAMADOL
     Indication: Pain
  6. METOPROLOL [Concomitant]
     Active Substance: METOPROLOL
     Indication: Blood pressure measurement
  7. SULINDAC [Concomitant]
     Active Substance: SULINDAC
     Indication: Arthritis
  8. MONTELUKAST [Concomitant]
     Active Substance: MONTELUKAST SODIUM
     Indication: Hypersensitivity
  9. PRAVASTATIN [Concomitant]
     Active Substance: PRAVASTATIN
     Indication: Blood cholesterol
  10. AMLODIPINE [Concomitant]
     Active Substance: AMLODIPINE BESYLATE
     Indication: Blood pressure measurement
  11. PANTOPRAZOLE [Concomitant]
     Active Substance: PANTOPRAZOLE
     Indication: Dyspepsia
  12. TORSEMIDE [Concomitant]
     Active Substance: TORSEMIDE
     Indication: Swelling
  13. METHOTREXATE [Concomitant]
     Active Substance: METHOTREXATE
     Indication: Rheumatoid arthritis
  14. AZELASTINE [Concomitant]
     Active Substance: AZELASTINE
     Indication: Hypersensitivity
  15. COENZYME Q10 [Concomitant]
     Active Substance: DIETARY SUPPLEMENT\UBIDECARENONE
     Indication: Supplementation therapy
  16. MUCINEX [Concomitant]
     Active Substance: GUAIFENESIN
     Indication: Productive cough
  17. FOLIC ACID [Concomitant]
     Active Substance: FOLIC ACID
     Indication: Folate deficiency
  18. VITAMIN D3 [Concomitant]
     Active Substance: CHOLECALCIFEROL
     Indication: Supplementation therapy
  19. ZINC PICOLINATE [Concomitant]
     Active Substance: ZINC PICOLINATE
     Indication: Supplementation therapy
  20. CALCIUM [Concomitant]
     Active Substance: CALCIUM
     Indication: Supplementation therapy
  21. GLUCOSAMINE [Concomitant]
     Active Substance: GLUCOSAMINE
     Indication: Arthritis
  22. IRON [Concomitant]
     Active Substance: IRON
     Indication: Anaemia
  23. ENULOSE [Concomitant]
     Active Substance: LACTULOSE
     Indication: Laxative supportive care
  24. JANSSEN COVID-19 VACCINE [Concomitant]
     Active Substance: AD26.COV2.S
     Indication: COVID-19 immunisation
     Dosage: TIME INTERVAL: 1 TOTAL: JOHNSON AND JOHNSON
     Route: 030
     Dates: start: 20210511, end: 20210511

REACTIONS (23)
  - Nerve compression [Recovering/Resolving]
  - Nerve block [Recovering/Resolving]
  - Pain [Recovering/Resolving]
  - Post procedural infection [Recovering/Resolving]
  - Arthralgia [Not Recovered/Not Resolved]
  - Stomatitis [Recovering/Resolving]
  - Elbow operation [Unknown]
  - Cubital tunnel syndrome [Recovering/Resolving]
  - Sciatica [Not Recovered/Not Resolved]
  - COVID-19 [Unknown]
  - Arthritis [Not Recovered/Not Resolved]
  - Back disorder [Unknown]
  - Pain in extremity [Not Recovered/Not Resolved]
  - Oral mucosal exfoliation [Not Recovered/Not Resolved]
  - Cataract [Not Recovered/Not Resolved]
  - Eye disorder [Not Recovered/Not Resolved]
  - Amblyopia [Unknown]
  - Nerve compression [Recovering/Resolving]
  - Arthralgia [Recovering/Resolving]
  - Localised infection [Recovering/Resolving]
  - Musculoskeletal disorder [Unknown]
  - Peripheral swelling [Not Recovered/Not Resolved]
  - Pain in extremity [Not Recovered/Not Resolved]

NARRATIVE: CASE EVENT DATE: 20210101
